FAERS Safety Report 9338264 (Version 1)
Quarter: 2013Q2

REPORT INFORMATION
  Report Type: Spontaneous
  Country: US (occurrence: None)
  Receive Date: 20130605
  Receipt Date: 20130605
  Transmission Date: 20140414
  Serious: Yes (Other)
  Sender: FDA-Public Use
  Company Number: None

PATIENT
  Age: 75 Year
  Sex: Female
  Weight: 84.82 kg

DRUGS (2)
  1. DESLORATADINE [Suspect]
     Indication: MULTIPLE ALLERGIES
     Dosage: APRIL-28TH, 29TH, 30TH?MAY 1ST, 2ND, 3RD.
     Route: 048
  2. DESLORATADINE [Suspect]
     Indication: RHINITIS ALLERGIC
     Dosage: APRIL-28TH, 29TH, 30TH?MAY 1ST, 2ND, 3RD.
     Route: 048

REACTIONS (4)
  - Vision blurred [None]
  - Dry mouth [None]
  - Fatigue [None]
  - Myalgia [None]
